FAERS Safety Report 6594709-1 (Version None)
Quarter: 2010Q1

REPORT INFORMATION
  Report Type: 
  Country: None (occurrence: None)
  Receive Date: 20100222
  Receipt Date: 20100208
  Transmission Date: 20100710
  Serious: Yes (Other)
  Sender: FDA-Public Use
  Company Number: GA-MYLANLABS-2010S1001945

PATIENT
  Age: 17 Year
  Sex: Female

DRUGS (7)
  1. THIOPENTAL SODIUM [Suspect]
     Indication: INDUCTION OF ANAESTHESIA
  2. SUCCINYLCHOLINE CHLORIDE [Suspect]
     Indication: INDUCTION OF ANAESTHESIA
  3. ISOFLURANE [Suspect]
     Indication: MAINTENANCE OF ANAESTHESIA
     Route: 055
  4. FENTANYL-100 [Suspect]
  5. RANITIDINE [Concomitant]
     Dosage: EFFERVESCENT FORMULATION
     Route: 048
  6. NITROUS OXIDE [Concomitant]
     Dosage: A MIXTURE OF 50% OXYGEN AND 50% NITROUS OXIDE
     Route: 055
  7. VECURONIUM BROMIDE [Concomitant]
     Indication: NEUROMUSCULAR BLOCKADE

REACTIONS (1)
  - TORSADE DE POINTES [None]
